FAERS Safety Report 16465148 (Version 5)
Quarter: 2021Q1

REPORT INFORMATION
  Report Type: Spontaneous
  Country: US (occurrence: US)
  Receive Date: 20190621
  Receipt Date: 20210112
  Transmission Date: 20210419
  Serious: Yes (Other)
  Sender: FDA-Public Use
  Company Number: US-PFIZER INC-2019267940

PATIENT
  Sex: Female
  Weight: 70.75 kg

DRUGS (2)
  1. EFFEXOR XR [Suspect]
     Active Substance: VENLAFAXINE HYDROCHLORIDE
     Dosage: 150 MG, 2X/DAY (QUANTITY 60  DAY SUPPLY 30)
  2. EFFEXOR XR [Suspect]
     Active Substance: VENLAFAXINE HYDROCHLORIDE
     Dosage: 300 MG, DAILY [150 MG CAPSULE / QTY 60 / DAY SUPPLY 30]

REACTIONS (2)
  - Cerebrovascular accident [Unknown]
  - Prescribed overdose [Unknown]
